FAERS Safety Report 8167049-7 (Version None)
Quarter: 2012Q1

REPORT INFORMATION
  Report Type: 
  Country: None (occurrence: None)
  Receive Date: 20120227
  Receipt Date: 20120224
  Transmission Date: 20120608
  Serious: Yes (Other)
  Sender: FDA-Public Use
  Company Number: US-PFIZER INC-2012050050

PATIENT
  Sex: Female
  Weight: 18.141 kg

DRUGS (3)
  1. SERTRALINE HYDROCHLORIDE [Suspect]
     Indication: ANXIETY
     Dosage: 0.5 MG, DAILY
     Route: 048
     Dates: start: 20120101, end: 20120212
  2. MIRALAX [Concomitant]
     Indication: CONSTIPATION
     Dosage: 8.5 G, DAILY
  3. SERTRALINE HYDROCHLORIDE [Suspect]
     Dosage: 1 ML, DAILY
     Route: 048
     Dates: start: 20120213

REACTIONS (5)
  - ABDOMINAL DISCOMFORT [None]
  - NASOPHARYNGITIS [None]
  - ABDOMINAL CAVITY DRAINAGE [None]
  - VOMITING [None]
  - NAUSEA [None]
